FAERS Safety Report 10358656 (Version 3)
Quarter: 2014Q4

REPORT INFORMATION
  Report Type: Spontaneous
  Country: US (occurrence: US)
  Receive Date: 20140803
  Receipt Date: 20141010
  Transmission Date: 20150528
  Serious: Yes (Disabling)
  Sender: FDA-Public Use
  Company Number: US-009507513-1407USA014094

PATIENT
  Sex: Female

DRUGS (1)
  1. GRASTEK [Suspect]
     Active Substance: PHLEUM PRATENSE POLLEN
     Indication: RHINITIS ALLERGIC
     Dosage: 2800 BAU/ONCE DAILY
     Route: 060

REACTIONS (6)
  - Oedema mouth [Unknown]
  - Nasal pruritus [Recovered/Resolved]
  - Swelling face [Recovered/Resolved]
  - Abdominal discomfort [Unknown]
  - Pruritus [Recovered/Resolved]
  - Swollen tongue [Unknown]

NARRATIVE: CASE EVENT DATE: 20140711
